FAERS Safety Report 6503598-2 (Version None)
Quarter: 2009Q4

REPORT INFORMATION
  Report Type: 
  Country: None (occurrence: None)
  Receive Date: 20091217
  Receipt Date: 20091207
  Transmission Date: 20100525
  Serious: Yes (Hospitalization, Other)
  Sender: FDA-Public Use
  Company Number: JP-PFIZER INC-2009290529

PATIENT
  Age: 71 Year
  Sex: Female
  Weight: 40 kg

DRUGS (2)
  1. LIPITOR [Suspect]
     Indication: DYSLIPIDAEMIA
     Dosage: 10 MG,UID, 1X/DAY
     Route: 048
     Dates: start: 20090908, end: 20091008
  2. LIPITOR [Suspect]
     Dosage: 10 MG , 1X/DAY
     Route: 048

REACTIONS (2)
  - GRANULOCYTE COUNT DECREASED [None]
  - PYREXIA [None]
